FAERS Safety Report 4592156-5 (Version None)
Quarter: 2005Q1

REPORT INFORMATION
  Report Type: 
  Country: None (occurrence: None)
  Receive Date: 20050226
  Receipt Date: 20031016
  Transmission Date: 20050727
  Serious: Yes (Disabling, Other)
  Sender: FDA-Public Use
  Company Number: US-MERCK-0310USA01948

PATIENT
  Age: 43 Year
  Sex: Male
  Weight: 118 kg

DRUGS (31)
  1. VIOXX [Suspect]
     Indication: PAIN IN EXTREMITY
     Route: 048
     Dates: start: 20000701
  2. VIOXX [Suspect]
     Route: 048
     Dates: start: 20010201, end: 20020301
  3. VIOXX [Suspect]
     Route: 048
     Dates: start: 20020321
  4. LOTREL [Concomitant]
     Route: 065
  5. PLAVIX [Concomitant]
     Route: 065
  6. PAXIL [Concomitant]
     Indication: DEPRESSION
     Route: 065
     Dates: start: 20000101
  7. NEXIUM [Concomitant]
     Indication: GASTROOESOPHAGEAL REFLUX DISEASE
     Route: 065
  8. PRILOSEC [Concomitant]
     Indication: GASTROOESOPHAGEAL REFLUX DISEASE
     Route: 065
  9. NORVASC [Concomitant]
     Indication: HYPERTENSION
     Route: 065
     Dates: start: 20000530, end: 20010628
  10. LIPITOR [Concomitant]
     Indication: BLOOD TRIGLYCERIDES INCREASED
     Route: 065
     Dates: start: 20000629, end: 20021007
  11. LIPITOR [Concomitant]
     Route: 065
     Dates: end: 20030601
  12. LIPITOR [Concomitant]
     Indication: BLOOD CHOLESTEROL INCREASED
     Route: 065
     Dates: start: 20000629, end: 20021007
  13. LIPITOR [Concomitant]
     Route: 065
     Dates: end: 20030601
  14. ZOCOR [Concomitant]
     Indication: BLOOD CHOLESTEROL INCREASED
     Route: 048
     Dates: start: 20000101, end: 20010312
  15. ZOCOR [Concomitant]
     Route: 048
  16. ZOCOR [Concomitant]
     Route: 048
  17. TRICOR [Concomitant]
     Indication: BLOOD TRIGLYCERIDES INCREASED
     Route: 065
     Dates: start: 20000101
  18. ZETIA [Concomitant]
     Indication: BLOOD TRIGLYCERIDES INCREASED
     Route: 048
     Dates: start: 20000101
  19. ZETIA [Concomitant]
     Route: 048
     Dates: start: 20030403
  20. TOPROL-XL [Concomitant]
     Indication: HYPERTENSION
     Route: 048
     Dates: start: 20000101, end: 20030601
  21. TOPROL-XL [Concomitant]
     Route: 048
  22. NEURONTIN [Concomitant]
     Route: 065
  23. ROBAXIN [Concomitant]
     Route: 048
  24. ASPIRIN [Concomitant]
     Route: 065
  25. IBUPROFEN [Concomitant]
     Route: 065
  26. GLUCOVANCE [Concomitant]
     Route: 065
  27. CLORAZEPATE DIPOTASSIUM [Concomitant]
     Route: 065
  28. DARVOCET-N 100 [Concomitant]
     Route: 065
  29. ALLEGRA [Concomitant]
     Route: 065
  30. HYDRODIURIL [Concomitant]
     Route: 048
  31. ALBUTEROL [Concomitant]
     Route: 055

REACTIONS (62)
  - ABDOMINAL DISTENSION [None]
  - ABDOMINAL PAIN [None]
  - ANGIOPATHY [None]
  - ANXIETY [None]
  - ASTHENIA [None]
  - ATHEROSCLEROSIS [None]
  - BACK PAIN [None]
  - BALANCE DISORDER [None]
  - BLOOD PRESSURE INCREASED [None]
  - BODY TEMPERATURE DECREASED [None]
  - CEREBRAL INFARCTION [None]
  - CEREBROVASCULAR ACCIDENT [None]
  - CHEST PAIN [None]
  - CONVULSION [None]
  - DEPRESSION [None]
  - DIABETES MELLITUS NON-INSULIN-DEPENDENT [None]
  - DIABETIC NEUROPATHY [None]
  - DIFFICULTY IN WALKING [None]
  - DISORIENTATION [None]
  - DIZZINESS [None]
  - DYSKINESIA [None]
  - DYSPEPSIA [None]
  - DYSPHAGIA [None]
  - DYSPNOEA [None]
  - EPIDERMAL NAEVUS [None]
  - ERUCTATION [None]
  - EYE IRRITATION [None]
  - EYE PRURITUS [None]
  - FATIGUE [None]
  - FEELING ABNORMAL [None]
  - GAIT DISTURBANCE [None]
  - HYPERCHOLESTEROLAEMIA [None]
  - HYPERTRIGLYCERIDAEMIA [None]
  - HYPOAESTHESIA [None]
  - HYPOTENSION [None]
  - INSOMNIA [None]
  - IRRITABILITY [None]
  - LACUNAR INFARCTION [None]
  - MEMORY IMPAIRMENT [None]
  - MUSCLE SPASMS [None]
  - MUSCLE TWITCHING [None]
  - MYALGIA [None]
  - NAUSEA [None]
  - NIGHT SWEATS [None]
  - OCULAR HYPERAEMIA [None]
  - OEDEMA PERIPHERAL [None]
  - OESOPHAGEAL DISORDER [None]
  - ONYCHOMYCOSIS [None]
  - PAIN [None]
  - PAIN IN EXTREMITY [None]
  - PALPITATIONS [None]
  - PARAESTHESIA [None]
  - PRODUCTIVE COUGH [None]
  - SLEEP APNOEA SYNDROME [None]
  - SPUTUM DISCOLOURED [None]
  - SUICIDAL IDEATION [None]
  - TINEA PEDIS [None]
  - TOE DEFORMITY [None]
  - TREMOR [None]
  - UPPER RESPIRATORY TRACT INFECTION [None]
  - VASCULAR DEMENTIA [None]
  - WHEEZING [None]
